FAERS Safety Report 25586019 (Version 1)
Quarter: 2025Q3

REPORT INFORMATION
  Report Type: Spontaneous
  Country: GB (occurrence: GB)
  Receive Date: 20250721
  Receipt Date: 20250721
  Transmission Date: 20251021
  Serious: Yes (Other)
  Sender: GUERBET
  Company Number: None

PATIENT
  Sex: Female
  Weight: 62 kg

DRUGS (1)
  1. DOTAREM [Suspect]
     Active Substance: GADOTERATE MEGLUMINE
     Indication: Product used for unknown indication
     Route: 051
     Dates: start: 20250707, end: 20250707

REACTIONS (5)
  - Vomiting [Recovering/Resolving]
  - Malaise [Unknown]
  - Dizziness [Unknown]
  - Gait inability [Unknown]
  - Sitting disability [Unknown]

NARRATIVE: CASE EVENT DATE: 20250707
